FAERS Safety Report 8711058 (Version 2)
Quarter: 2012Q4

REPORT INFORMATION
  Report Type: Spontaneous
  Country: None (occurrence: None)
  Receive Date: 20120720
  Receipt Date: 20120814
  Transmission Date: 20130627
  Serious: Yes (Hospitalization)
  Sender: FDA-Public Use
  Company Number: AUR-APL-2012-02610

PATIENT
  Sex: Female

DRUGS (7)
  1. QUETIAPINE FUMARATE [Suspect]
     Indication: PRODUCT USED FOR UNKNOWN INDICATION
     Dosage: (200 MG), ORAL, TWO 200 MG AT NIGHT, ORAL, FOUR 200 MG BY MISTAKE, ORAL
     Route: 048
     Dates: start: 20120517, end: 20120520
  2. QUETIAPINE FUMARATE [Suspect]
     Indication: PRODUCT USED FOR UNKNOWN INDICATION
     Dosage: (200 MG), ORAL, TWO 200 MG AT NIGHT, ORAL, FOUR 200 MG BY MISTAKE, ORAL
     Route: 048
     Dates: start: 2012, end: 2012
  3. QUETIAPINE FUMARATE [Suspect]
     Indication: PRODUCT USED FOR UNKNOWN INDICATION
     Dosage: (200 MG), ORAL, TWO 200 MG AT NIGHT, ORAL, FOUR 200 MG BY MISTAKE, ORAL
     Route: 048
     Dates: start: 2012, end: 2012
  4. TRAMADOL HYDROCHLORIDE [Suspect]
     Indication: PRODUCT USED FOR UNKNOWN INDICATION
  5. PANADEINE FORTE (PANADEINE CO) [Concomitant]
  6. IMOVANE (ZOPICLONE) [Concomitant]
  7. RISPERIDONE (RISPERIDONE) [Concomitant]

REACTIONS (2)
  - Hypersensitivity [None]
  - Accidental overdose [None]
